FAERS Safety Report 12231087 (Version 5)
Quarter: 2016Q4

REPORT INFORMATION
  Report Type: Report from Study
  Country: US (occurrence: US)
  Receive Date: 20160401
  Receipt Date: 20161109
  Transmission Date: 20170207
  Serious: Yes (Hospitalization, Other)
  Sender: FDA-Public Use
  Company Number: US-AMGEN-USASL2016039007

PATIENT
  Age: 70 Year
  Sex: Male

DRUGS (2)
  1. NPLATE [Suspect]
     Active Substance: ROMIPLOSTIM
     Indication: IMMUNE THROMBOCYTOPENIC PURPURA
     Dosage: UNK
     Route: 065
     Dates: start: 2012
  2. PREDNISONE. [Concomitant]
     Active Substance: PREDNISONE
     Dosage: 5 MG  AND 10 MG

REACTIONS (13)
  - Fall [Unknown]
  - Paraesthesia [Unknown]
  - Hordeolum [Recovered/Resolved]
  - Coronary artery occlusion [Unknown]
  - Cardiac tamponade [Unknown]
  - Neoplasm malignant [Unknown]
  - Myocardial infarction [Unknown]
  - Fatigue [Unknown]
  - Platelet count decreased [Unknown]
  - Infection [Unknown]
  - Petechiae [Unknown]
  - Drug effect delayed [Unknown]
  - Neuroendocrine carcinoma of the skin [Unknown]
